FAERS Safety Report 8839477 (Version 1)
Quarter: 2012Q4

REPORT INFORMATION
  Report Type: Spontaneous
  Country: US (occurrence: None)
  Receive Date: 20121012
  Receipt Date: 20121012
  Transmission Date: 20130627
  Serious: Yes (Life-Threatening)
  Sender: FDA-Public Use
  Company Number: None

PATIENT
  Sex: Male
  Weight: 87.09 kg

DRUGS (1)
  1. NATEGLINIDE [Suspect]
     Indication: BLOOD SUGAR INCREASED
     Route: 048
     Dates: start: 20120920, end: 20120930

REACTIONS (5)
  - Dizziness [None]
  - Fall [None]
  - Asthenia [None]
  - Arthralgia [None]
  - Oedema peripheral [None]
